FAERS Safety Report 5740270-0 (Version None)
Quarter: 2008Q2

REPORT INFORMATION
  Report Type: 
  Country: None (occurrence: None)
  Receive Date: 20080516
  Receipt Date: 20080507
  Transmission Date: 20081010
  Serious: Yes (Death)
  Sender: FDA-Public Use
  Company Number: US-JNJFOC-20080501870

PATIENT
  Age: 74 Year
  Sex: Female

DRUGS (19)
  1. TOLECTIN [Suspect]
     Indication: DRUG USE FOR UNKNOWN INDICATION
     Route: 065
  2. LASIX [Suspect]
     Indication: DRUG USE FOR UNKNOWN INDICATION
     Route: 065
  3. TAGAMET [Concomitant]
  4. HYTRIN [Concomitant]
  5. LANOXIN [Concomitant]
  6. OXAZEPAM [Concomitant]
  7. CALAN [Concomitant]
  8. LEVSIN [Concomitant]
  9. PRONESTYL [Concomitant]
  10. TORADOL [Concomitant]
  11. SULINDAC [Concomitant]
  12. PIPRACIL [Concomitant]
  13. PROCARDIA [Concomitant]
  14. PHENERGAN [Concomitant]
  15. MORPHINE [Concomitant]
  16. DEMEROL [Concomitant]
  17. LORTAB [Concomitant]
  18. DONNATAL [Concomitant]
  19. ZANTAC [Concomitant]

REACTIONS (3)
  - HAEMOLYTIC ANAEMIA [None]
  - INTRAVASCULAR HAEMOLYSIS [None]
  - RENAL FAILURE [None]
